FAERS Safety Report 7870348-7 (Version None)
Quarter: 2011Q4

REPORT INFORMATION
  Report Type: 
  Country: None (occurrence: None)
  Receive Date: 20111029
  Receipt Date: 20111026
  Transmission Date: 20120403
  Serious: Yes (Other)
  Sender: FDA-Public Use
  Company Number: CA-ABBOTT-11P-028-0864305-00

PATIENT
  Sex: Male
  Weight: 43.13 kg

DRUGS (2)
  1. TRUVADA [Concomitant]
     Indication: HIV INFECTION
     Route: 048
  2. KALETRA [Suspect]
     Indication: ANTIRETROVIRAL THERAPY
     Dosage: 2-200MG/50MG TABS DAILY
     Route: 048
     Dates: start: 20020901

REACTIONS (3)
  - MASTICATION DISORDER [None]
  - ORAL PAPILLOMA [None]
  - COLON CANCER [None]
